FAERS Safety Report 6926469-6 (Version None)
Quarter: 2010Q3

REPORT INFORMATION
  Report Type: 
  Country: None (occurrence: None)
  Receive Date: 20100816
  Receipt Date: 20100719
  Transmission Date: 20110219
  Serious: No
  Sender: FDA-Public Use
  Company Number: US-BAYER-201026246NA

PATIENT
  Age: 52 Year
  Sex: Female

DRUGS (1)
  1. BETASERON [Suspect]
     Indication: PRODUCT USED FOR UNKNOWN INDICATION
     Route: 058
     Dates: end: 20081101

REACTIONS (4)
  - ASTHENIA [None]
  - FATIGUE [None]
  - INJECTION SITE CELLULITIS [None]
  - WEIGHT INCREASED [None]
